FAERS Safety Report 6193613-0 (Version None)
Quarter: 2009Q2

REPORT INFORMATION
  Report Type: 
  Country: None (occurrence: None)
  Receive Date: 20090514
  Receipt Date: 20090501
  Transmission Date: 20091009
  Serious: Yes (Hospitalization)
  Sender: FDA-Public Use
  Company Number: 2009001063

PATIENT
  Age: 70 Year
  Sex: Female

DRUGS (6)
  1. ERLOTINIB (ERLOTINIB) (TABLET) (ERLOTINIB) [Suspect]
     Indication: NON-SMALL CELL LUNG CANCER
     Dosage: (150 MG, QD), ORAL
     Route: 048
     Dates: start: 20090306, end: 20090323
  2. NADOLOL [Suspect]
  3. HYZAAR [Suspect]
  4. NORVASC [Suspect]
  5. LIPITOR [Suspect]
  6. ASPIRIN [Suspect]

REACTIONS (8)
  - ACNE [None]
  - BLOOD PRESSURE INCREASED [None]
  - DIARRHOEA [None]
  - DIVERTICULUM INTESTINAL [None]
  - GASTRITIS [None]
  - GASTROINTESTINAL HAEMORRHAGE [None]
  - HAEMORRHAGIC ANAEMIA [None]
  - NAUSEA [None]
